FAERS Safety Report 25123677 (Version 1)
Quarter: 2025Q1

REPORT INFORMATION
  Report Type: Spontaneous
  Country: US (occurrence: None)
  Receive Date: 20250326
  Receipt Date: 20250326
  Transmission Date: 20250408
  Serious: Yes (Hospitalization)
  Sender: FDA-CTU
  Company Number: None

PATIENT
  Age: 69 Year
  Sex: Female
  Weight: 94.9 kg

DRUGS (9)
  1. CYCLOPHOSPHAMIDE [Suspect]
     Active Substance: CYCLOPHOSPHAMIDE
     Dates: end: 20250204
  2. CYTARABINE [Suspect]
     Active Substance: CYTARABINE
     Dates: end: 20250227
  3. SPRYCEL [Suspect]
     Active Substance: DASATINIB
     Dates: end: 20250308
  4. DEXAMETHASONE [Suspect]
     Active Substance: DEXAMETHASONE
     Dates: end: 20250214
  5. DOXORUBICIN HYDROCHLORIDE [Suspect]
     Active Substance: DOXORUBICIN HYDROCHLORIDE
     Dates: end: 20250205
  6. MESNA [Suspect]
     Active Substance: MESNA
     Dates: end: 20250204
  7. METHOTREXATE [Suspect]
     Active Substance: METHOTREXATE
     Dates: end: 20250224
  8. PREDNISONE [Suspect]
     Active Substance: PREDNISONE
     Dates: end: 20241210
  9. VINCRISTINE SULFATE [Suspect]
     Active Substance: VINCRISTINE SULFATE
     Dates: end: 20250219

REACTIONS (2)
  - Supraventricular tachycardia [None]
  - Epistaxis [None]

NARRATIVE: CASE EVENT DATE: 20250308
